FAERS Safety Report 12781846 (Version 1)
Quarter: 2016Q3

REPORT INFORMATION
  Report Type: Report from Study
  Country: DE (occurrence: DE)
  Receive Date: 20160926
  Receipt Date: 20160926
  Transmission Date: 20161109
  Serious: Yes (Hospitalization)
  Sender: FDA-Public Use
  Company Number: US-ASTRAZENECA-2016SF02091

PATIENT
  Age: 1 Year
  Sex: Male

DRUGS (7)
  1. SYNAGIS [Suspect]
     Active Substance: PALIVIZUMAB
     Indication: ANTIVIRAL PROPHYLAXIS
     Dosage: 100.0MG ONCE/SINGLE ADMINISTRATION
     Route: 030
     Dates: start: 20110224, end: 20110224
  2. SYNAGIS [Suspect]
     Active Substance: PALIVIZUMAB
     Indication: ANTIVIRAL PROPHYLAXIS
     Dosage: 50.0MG ONCE/SINGLE ADMINISTRATION
     Route: 030
     Dates: start: 20101104, end: 20101104
  3. SYNAGIS [Suspect]
     Active Substance: PALIVIZUMAB
     Indication: ANTIVIRAL PROPHYLAXIS
     Dosage: 50.0MG ONCE/SINGLE ADMINISTRATION
     Route: 030
     Dates: start: 20101230, end: 20101230
  4. SYNAGIS [Suspect]
     Active Substance: PALIVIZUMAB
     Indication: ANTIVIRAL PROPHYLAXIS
     Dosage: 100.0MG ONCE/SINGLE ADMINISTRATION
     Route: 030
     Dates: start: 20110324, end: 20110324
  5. SYNAGIS [Suspect]
     Active Substance: PALIVIZUMAB
     Indication: ANTIVIRAL PROPHYLAXIS
     Dosage: 50.0MG ONCE/SINGLE ADMINISTRATION
     Route: 030
     Dates: start: 20101202, end: 20101202
  6. SYNAGIS [Suspect]
     Active Substance: PALIVIZUMAB
     Indication: ANTIVIRAL PROPHYLAXIS
     Dosage: 100.0MG ONCE/SINGLE ADMINISTRATION
     Route: 030
     Dates: start: 20110127, end: 20110127
  7. SYNAGIS [Suspect]
     Active Substance: PALIVIZUMAB
     Indication: ANTIVIRAL PROPHYLAXIS
     Dosage: 50.0MG ONCE/SINGLE ADMINISTRATION
     Route: 030
     Dates: start: 20101007, end: 20101007

REACTIONS (1)
  - Pneumonia [Unknown]

NARRATIVE: CASE EVENT DATE: 2011
